FAERS Safety Report 25995847 (Version 1)
Quarter: 2025Q4

REPORT INFORMATION
  Report Type: Spontaneous
  Country: SA (occurrence: SA)
  Receive Date: 20251104
  Receipt Date: 20251104
  Transmission Date: 20260118
  Serious: Yes (Other)
  Sender: MACLEODS
  Company Number: SA-MLMSERVICE-20251016-PI678728-00105-1

PATIENT

DRUGS (1)
  1. CLOBETASOL PROPIONATE [Suspect]
     Active Substance: CLOBETASOL PROPIONATE
     Indication: Wound complication
     Route: 061

REACTIONS (2)
  - Cutaneous leishmaniasis [Recovering/Resolving]
  - Skin infection [Recovering/Resolving]
